FAERS Safety Report 23455242 (Version 5)
Quarter: 2024Q2

REPORT INFORMATION
  Report Type: Spontaneous
  Country: BE (occurrence: BE)
  Receive Date: 20240130
  Receipt Date: 20240514
  Transmission Date: 20240716
  Serious: Yes (Hospitalization, Other)
  Sender: FDA-Public Use
  Company Number: BE-MYLANLABS-2023M1121759

PATIENT
  Age: 43 Year
  Sex: Male

DRUGS (31)
  1. TACROLIMUS [Interacting]
     Active Substance: TACROLIMUS
     Indication: Heart transplant
     Dosage: 2 MG, TWICE DAILY (BASED UPON TDM)
     Route: 048
     Dates: start: 202202, end: 20221125
  2. TACROLIMUS [Interacting]
     Active Substance: TACROLIMUS
     Indication: Prophylaxis against transplant rejection
  3. TACROLIMUS [Interacting]
     Active Substance: TACROLIMUS
     Indication: Immunosuppressant drug therapy
  4. TACROLIMUS [Interacting]
     Active Substance: TACROLIMUS
     Indication: Immunosuppressant drug therapy
     Route: 065
  5. TACROLIMUS [Interacting]
     Active Substance: TACROLIMUS
     Indication: Prophylaxis against transplant rejection
  6. AMPHOTERICIN B [Suspect]
     Active Substance: AMPHOTERICIN B
     Indication: Bronchopulmonary aspergillosis
     Route: 042
     Dates: start: 20221007, end: 20221110
  7. COTRIMOXAZOLE [Interacting]
     Active Substance: SULFAMETHOXAZOLE\TRIMETHOPRIM
     Indication: Nocardiosis
     Dosage: 960 MG, TWICE DAILY (2 TABLETS)
     Route: 048
     Dates: start: 20220926, end: 20221115
  8. COTRIMOXAZOLE [Interacting]
     Active Substance: SULFAMETHOXAZOLE\TRIMETHOPRIM
     Indication: Renal impairment
     Dosage: 2 DF, 4 TIMES DAILY (2 TAB 4/DAY PO)
     Route: 048
     Dates: start: 20221230, end: 20230104
  9. COTRIMOXAZOLE [Interacting]
     Active Substance: SULFAMETHOXAZOLE\TRIMETHOPRIM
     Dosage: 2 DF, EVERY 8 HOURS ( TID (2 TAB 3/DAY PO))
     Route: 048
     Dates: start: 20230105, end: 20230106
  10. COTRIMOXAZOLE [Interacting]
     Active Substance: SULFAMETHOXAZOLE\TRIMETHOPRIM
     Dosage: UNK UNK, UNKNOWN FREQ.
     Route: 048
     Dates: start: 20230106, end: 20230112
  11. POSACONAZOLE [Interacting]
     Active Substance: POSACONAZOLE
     Indication: Fungal infection
     Route: 048
     Dates: start: 20221007, end: 20221205
  12. POSACONAZOLE [Interacting]
     Active Substance: POSACONAZOLE
     Indication: Cerebral aspergillosis
  13. POSACONAZOLE [Interacting]
     Active Substance: POSACONAZOLE
     Indication: Aspergillus infection
  14. POSACONAZOLE [Interacting]
     Active Substance: POSACONAZOLE
     Indication: Drug therapy
  15. VORICONAZOLE [Suspect]
     Active Substance: VORICONAZOLE
     Indication: Aspergillus infection
     Dosage: 300 MG, TWICE DAILY (CHANGE D BASED UPON TDM)
     Route: 042
     Dates: start: 20220902, end: 20231007
  16. VORICONAZOLE [Suspect]
     Active Substance: VORICONAZOLE
     Indication: Bronchopulmonary aspergillosis
     Dosage: UNK UNK, UNKNOWN FREQ.
     Route: 065
  17. CASPOFUNGIN [Interacting]
     Active Substance: CASPOFUNGIN
     Indication: Aspergillus infection
     Route: 042
     Dates: start: 20220914, end: 20220926
  18. CASPOFUNGIN [Interacting]
     Active Substance: CASPOFUNGIN
     Indication: Cerebral nocardiosis
     Route: 042
     Dates: start: 20221205, end: 20230331
  19. CASPOFUNGIN [Interacting]
     Active Substance: CASPOFUNGIN
     Indication: Evidence based treatment
  20. SIROLIMUS [Interacting]
     Active Substance: SIROLIMUS
     Indication: Prophylaxis against transplant rejection
     Dosage: UNK UNK, UNKNOWN FREQ.
     Route: 065
     Dates: start: 20221125
  21. MYCOPHENOLIC ACID [Concomitant]
     Active Substance: MYCOPHENOLIC ACID
     Indication: Prophylaxis against transplant rejection
     Route: 048
     Dates: start: 20220213
  22. MYCOPHENOLIC ACID [Concomitant]
     Active Substance: MYCOPHENOLIC ACID
     Indication: Immunosuppressant drug therapy
  23. MEROPENEM [Concomitant]
     Active Substance: MEROPENEM
     Indication: Central nervous system infection
     Route: 042
     Dates: start: 20220926, end: 20231110
  24. MEROPENEM [Concomitant]
     Active Substance: MEROPENEM
     Indication: Evidence based treatment
  25. MEROPENEM [Concomitant]
     Active Substance: MEROPENEM
     Indication: Bronchopulmonary aspergillosis
  26. MEROPENEM [Concomitant]
     Active Substance: MEROPENEM
     Indication: Cerebral nocardiosis
  27. CEFTRIAXONE [Concomitant]
     Active Substance: CEFTRIAXONE\CEFTRIAXONE SODIUM
     Indication: Nocardiosis
     Route: 042
     Dates: start: 20221115, end: 20230209
  28. CEFTRIAXONE [Concomitant]
     Active Substance: CEFTRIAXONE\CEFTRIAXONE SODIUM
     Dosage: 2 G, ONCE DAILY (26/JAN - 9/FEB: CEFTRIAXONE 2 G 2/DAY IV)
     Route: 042
  29. CEFTRIAXONE [Concomitant]
     Active Substance: CEFTRIAXONE\CEFTRIAXONE SODIUM
     Dosage: 2 G, ONCE DAILY (26/JAN - 9/FEB: CEFTRIAXONE 2 G 2/DAY IV)
     Route: 042
     Dates: end: 20230209
  30. VFEND [Concomitant]
     Active Substance: VORICONAZOLE
     Indication: Aspergillus infection
     Dosage: 300 MG, TWICE DAILY (CHANGED BASED UPON TDM)
     Route: 042
     Dates: start: 20220902, end: 20231007
  31. MEROPENEM [Concomitant]
     Active Substance: MEROPENEM
     Indication: Central nervous system infection
     Route: 042
     Dates: start: 20220926, end: 20231110

REACTIONS (16)
  - Microangiopathic haemolytic anaemia [Recovered/Resolved]
  - Candida infection [Recovered/Resolved]
  - Bronchopulmonary aspergillosis [Recovered/Resolved]
  - Bronchopulmonary aspergillosis [Recovered/Resolved]
  - Pulmonary nocardiosis [Recovered/Resolved]
  - Brain abscess [Recovered/Resolved]
  - Fungal infection [Recovered/Resolved]
  - Acute kidney injury [Recovered/Resolved]
  - Drug ineffective [Unknown]
  - Pancytopenia [Recovered/Resolved]
  - Respiratory distress [Unknown]
  - Condition aggravated [Unknown]
  - Pyrexia [Unknown]
  - General physical health deterioration [Unknown]
  - Labelled drug-drug interaction issue [Unknown]
  - Off label use [Unknown]

NARRATIVE: CASE EVENT DATE: 20221007
